FAERS Safety Report 18692192 (Version 2)
Quarter: 2021Q1

REPORT INFORMATION
  Report Type: Spontaneous
  Country: US (occurrence: US)
  Receive Date: 20210102
  Receipt Date: 20210215
  Transmission Date: 20210419
  Serious: Yes (Hospitalization)
  Sender: FDA-Public Use
  Company Number: US-GW PHARMA-202012USGW04541

PATIENT

DRUGS (1)
  1. EPIDIOLEX [Suspect]
     Active Substance: CANNABIDIOL
     Indication: LENNOX-GASTAUT SYNDROME
     Dosage: 21.05 MG/KG/DAY, 200 MILLIGRAM, BID
     Route: 048
     Dates: start: 20201201

REACTIONS (2)
  - Respiratory disorder [Not Recovered/Not Resolved]
  - Overdose [Unknown]
